FAERS Safety Report 18369479 (Version 2)
Quarter: 2020Q4

REPORT INFORMATION
  Report Type: Report from Study
  Country: CA (occurrence: CA)
  Receive Date: 20201012
  Receipt Date: 20201102
  Transmission Date: 20210114
  Serious: Yes (Hospitalization)
  Sender: FDA-Public Use
  Company Number: CA-ROCHE-2689482

PATIENT

DRUGS (1)
  1. RITUXIMAB. [Suspect]
     Active Substance: RITUXIMAB
     Indication: B-CELL LYMPHOMA
     Dosage: DOSE 478 UNIT NOT REPORTED
     Route: 042
     Dates: start: 20151126

REACTIONS (1)
  - Gastrointestinal fistula [Recovered/Resolved]

NARRATIVE: CASE EVENT DATE: 20151203
